FAERS Safety Report 6155199-6 (Version None)
Quarter: 2009Q2

REPORT INFORMATION
  Report Type: 
  Country: None (occurrence: None)
  Receive Date: 20090415
  Receipt Date: 20090402
  Transmission Date: 20091009
  Serious: Yes (Hospitalization)
  Sender: FDA-Public Use
  Company Number: GB-RANBAXY-2009RR-23294

PATIENT
  Sex: Female
  Weight: 72.4 kg

DRUGS (4)
  1. GANCICLOVIR [Suspect]
     Indication: CYTOMEGALOVIRUS INFECTION
     Dosage: UNK
     Route: 048
  2. GANCICLOVIR SODIUM [Suspect]
     Indication: CYTOMEGALOVIRUS INFECTION
     Dosage: UNK
     Route: 042
  3. DAPSONE [Suspect]
     Indication: ANTIFUNGAL PROPHYLAXIS
     Route: 065
  4. SEPTRIN [Suspect]
     Indication: ANTIFUNGAL PROPHYLAXIS
     Route: 065

REACTIONS (2)
  - METHAEMOGLOBINAEMIA [None]
  - NEUTROPHIL COUNT DECREASED [None]
